FAERS Safety Report 21932537 (Version 1)
Quarter: 2023Q1

REPORT INFORMATION
  Report Type: Report from Study
  Country: GR (occurrence: GR)
  Receive Date: 20230131
  Receipt Date: 20230131
  Transmission Date: 20230418
  Serious: Yes (Death, Other)
  Sender: FDA-Public Use
  Company Number: GR-TAKEDA-2023TUS010674

PATIENT
  Age: 87 Year
  Sex: Female

DRUGS (1)
  1. HUMAN IMMUNOGLOBULIN G\HYALURONIDASE RECOMBINANT HUMAN [Suspect]
     Active Substance: HUMAN IMMUNOGLOBULIN G\HYALURONIDASE RECOMBINANT HUMAN
     Indication: Immunodeficiency
     Dosage: 1 DOSAGE FORM, MONTHLY
     Route: 058
     Dates: start: 20200213, end: 202212

REACTIONS (2)
  - Dementia [Fatal]
  - Immunodeficiency [Fatal]

NARRATIVE: CASE EVENT DATE: 20221224
